FAERS Safety Report 17251380 (Version 1)
Quarter: 2020Q1

REPORT INFORMATION
  Report Type: Spontaneous
  Country: GB (occurrence: GB)
  Receive Date: 20200109
  Receipt Date: 20200109
  Transmission Date: 20200409
  Serious: Yes (Other)
  Sender: FDA-Public Use
  Company Number: NVSC2020GB001720

PATIENT
  Sex: Male

DRUGS (3)
  1. PREDNISOLONE. [Suspect]
     Active Substance: PREDNISOLONE
     Indication: ROSAI-DORFMAN SYNDROME
     Dosage: 40 MG, QD (20-40 MG FOR SEVERAL WEEKS)
     Route: 048
     Dates: start: 201905
  2. CLADRIBINE. [Suspect]
     Active Substance: CLADRIBINE
     Indication: ROSAI-DORFMAN SYNDROME
     Dosage: 5 MG, QD (PER CYCLE) (FOR 5 D, EVERY 28 D)
     Route: 065
  3. METHOTREXATE. [Suspect]
     Active Substance: METHOTREXATE
     Indication: ROSAI-DORFMAN SYNDROME
     Dosage: 20 MG/M2, QW
     Route: 048
     Dates: start: 201908

REACTIONS (6)
  - Product use in unapproved indication [Unknown]
  - Lower respiratory tract infection [Not Recovered/Not Resolved]
  - Dyspnoea [Not Recovered/Not Resolved]
  - Haemoptysis [Not Recovered/Not Resolved]
  - Pneumonia [Unknown]
  - Disease progression [Not Recovered/Not Resolved]

NARRATIVE: CASE EVENT DATE: 201905
